FAERS Safety Report 6992481-4 (Version None)
Quarter: 2010Q3

REPORT INFORMATION
  Report Type: 
  Country: None (occurrence: None)
  Receive Date: 20100917
  Receipt Date: 20100909
  Transmission Date: 20110219
  Serious: Yes (Death, Hospitalization, Other)
  Sender: FDA-Public Use
  Company Number: GR-ELI_LILLY_AND_COMPANY-GR201009002260

PATIENT
  Sex: Male
  Weight: 70 kg

DRUGS (10)
  1. NECITUMUMAB (11F8) (LY3012211) [Suspect]
     Indication: NON-SMALL CELL LUNG CANCER STAGE IV
     Dosage: UNK, UNK
     Dates: start: 20100818
  2. GEMCITABINE HCL [Suspect]
     Indication: NON-SMALL CELL LUNG CANCER STAGE IV
     Dosage: UNK, UNK
     Dates: start: 20100818
  3. CISPLATIN [Suspect]
     Indication: NON-SMALL CELL LUNG CANCER STAGE IV
     Dosage: 135 MG, UNK
     Dates: start: 20100818, end: 20100818
  4. CISPLATIN [Suspect]
     Dosage: 102 MG, UNK
     Dates: start: 20100908, end: 20100908
  5. DIAMICRON [Concomitant]
  6. GLUCOPHAGE [Concomitant]
  7. NORVASC [Concomitant]
     Dates: start: 20020101
  8. LONALGAL [Concomitant]
     Dosage: UNK, UNK
  9. PARIET [Concomitant]
  10. DEXAMETHASONE [Concomitant]

REACTIONS (2)
  - DYSPNOEA [None]
  - HAEMOPTYSIS [None]
